FAERS Safety Report 8912838 (Version 2)
Quarter: 2013Q1

REPORT INFORMATION
  Report Type: Report from Study
  Country: CA (occurrence: CA)
  Receive Date: 20121116
  Receipt Date: 20130125
  Transmission Date: 20140127
  Serious: Yes (Hospitalization, Other)
  Sender: FDA-Public Use
  Company Number: CA-JNJFOC-20121105676

PATIENT
  Sex: Female

DRUGS (3)
  1. REMICADE [Suspect]
     Indication: PSORIASIS
     Route: 042
  2. REMICADE [Suspect]
     Indication: RHEUMATOID ARTHRITIS
     Route: 042
  3. CLINDAMYCIN [Suspect]
     Indication: CYST
     Route: 065
     Dates: start: 2012, end: 2012

REACTIONS (3)
  - Hypersensitivity [Unknown]
  - Skin necrosis [Unknown]
  - Cyst [Unknown]
